FAERS Safety Report 5758495-7 (Version None)
Quarter: 2008Q2

REPORT INFORMATION
  Report Type: 
  Country: None (occurrence: None)
  Receive Date: 20080604
  Receipt Date: 20080527
  Transmission Date: 20081010
  Serious: Yes (Hospitalization)
  Sender: FDA-Public Use
  Company Number: A0697319A

PATIENT
  Age: 76 Year
  Sex: Female
  Weight: 80 kg

DRUGS (6)
  1. LAPATINIB [Suspect]
     Indication: BREAST CANCER
     Dosage: 1500MG PER DAY
     Route: 048
     Dates: start: 20071011
  2. ENABLEX [Concomitant]
     Dates: start: 20070601
  3. ZOMETA [Concomitant]
     Route: 042
     Dates: start: 20050301
  4. M.V.I. [Concomitant]
     Route: 048
  5. CALCIUM + VITAMIN D [Concomitant]
     Dosage: 500MG PER DAY
     Route: 048
  6. FEMARA [Concomitant]
     Dosage: 2.5MG PER DAY

REACTIONS (11)
  - ANXIETY [None]
  - ARTHRALGIA [None]
  - CARDIAC MURMUR [None]
  - CELLULITIS [None]
  - CHILLS [None]
  - COUGH [None]
  - ERYTHEMA [None]
  - HYPERVENTILATION [None]
  - LYMPHOEDEMA [None]
  - NAUSEA [None]
  - PYREXIA [None]
